FAERS Safety Report 9299491 (Version 2)
Quarter: 2013Q2

REPORT INFORMATION
  Report Type: Spontaneous
  Country: US (occurrence: US)
  Receive Date: 20130521
  Receipt Date: 20130524
  Transmission Date: 20140414
  Serious: No
  Sender: FDA-Public Use
  Company Number: US-009507513-1305USA011029

PATIENT
  Age: 61 Year
  Sex: Female

DRUGS (3)
  1. JANUMET [Suspect]
     Indication: DIABETES MELLITUS
     Dosage: 1000/50 TWICE DAILY
     Route: 048
     Dates: start: 20130407, end: 201305
  2. GLIPIZIDE [Concomitant]
  3. PRINIVIL [Concomitant]

REACTIONS (2)
  - Blood glucose increased [Unknown]
  - Drug ineffective [Unknown]
